FAERS Safety Report 23494694 (Version 1)
Quarter: 2024Q1

REPORT INFORMATION
  Report Type: Spontaneous
  Country: US (occurrence: None)
  Receive Date: 20240206
  Receipt Date: 20240206
  Transmission Date: 20240410
  Serious: Yes (Hospitalization)
  Sender: FDA-Public Use
  Company Number: None

PATIENT
  Sex: Female
  Weight: 75.15 kg

DRUGS (1)
  1. PROMACTA [Suspect]
     Active Substance: ELTROMBOPAG OLAMINE
     Indication: Myelodysplastic syndrome with single lineage dysplasia
     Dosage: FREQUENCY : DAILY;?
     Route: 048
     Dates: start: 20220826

REACTIONS (2)
  - Fall [None]
  - Diabetes mellitus [None]
